FAERS Safety Report 5888015-8 (Version None)
Quarter: 2008Q3

REPORT INFORMATION
  Report Type: 
  Country: None (occurrence: None)
  Receive Date: 20080918
  Receipt Date: 20080909
  Transmission Date: 20090109
  Serious: Yes (Life-Threatening, Hospitalization, Other)
  Sender: FDA-Public Use
  Company Number: FR-ROCHE-333713

PATIENT
  Sex: Male
  Weight: 11.2 kg

DRUGS (1)
  1. ROCEPHIN [Suspect]
     Dosage: ONE DOSE ONLY WAS ADMINISTERED.
     Route: 042

REACTIONS (7)
  - ANOXIA [None]
  - BRADYCARDIA [None]
  - CARDIAC ARREST [None]
  - CEREBRAL ISCHAEMIA [None]
  - COMA [None]
  - CONVULSION [None]
  - PSYCHOMOTOR RETARDATION [None]
